FAERS Safety Report 17190651 (Version 1)
Quarter: 2019Q4

REPORT INFORMATION
  Report Type: Spontaneous
  Country: SE (occurrence: SE)
  Receive Date: 20191223
  Receipt Date: 20191223
  Transmission Date: 20200122
  Serious: Yes (Hospitalization)
  Sender: FDA-Public Use
  Company Number: SE-TEVA-2019-SE-1154942

PATIENT
  Age: 24 Year
  Sex: Female

DRUGS (3)
  1. OXASCAND [Suspect]
     Active Substance: OXAZEPAM
     Dosage: 25 ST, 375 MG
     Route: 048
     Dates: start: 20181025, end: 20181025
  2. ZOPICLONE [Suspect]
     Active Substance: ZOPICLONE
     Dosage: 10 ST, 75 MG
     Dates: start: 20181025, end: 20181025
  3. PROPAVAN [Suspect]
     Active Substance: PROPIOMAZINE
     Dosage: 20 ST
     Route: 048
     Dates: start: 20181025, end: 20181025

REACTIONS (2)
  - Intentional overdose [Unknown]
  - Intentional self-injury [Unknown]

NARRATIVE: CASE EVENT DATE: 20181025
